FAERS Safety Report 6706900-1 (Version None)
Quarter: 2010Q2

REPORT INFORMATION
  Report Type: 
  Country: None (occurrence: None)
  Receive Date: 20100430
  Receipt Date: 20100430
  Transmission Date: 20101027
  Serious: Yes (Hospitalization, Other)
  Sender: FDA-Public Use
  Company Number: None

PATIENT
  Age: 51 Year
  Sex: Male
  Weight: 88 kg

DRUGS (11)
  1. NOVOSEVEN RT [Suspect]
     Indication: HAEMOSTASIS
     Dosage: 5 MG TWICE IV ; TWO DOSES
     Route: 042
     Dates: start: 20090222, end: 20090222
  2. ISOPROTERENOL HCL [Concomitant]
  3. MILRINONE [Concomitant]
  4. EPINEPHRINE [Concomitant]
  5. SOLU-MEDROL [Concomitant]
  6. ZENAPAX [Concomitant]
  7. MYCOPHENOLATE MOFETIL [Concomitant]
  8. TACROLIMUS [Concomitant]
  9. VALGANCICLOVIR HCL [Concomitant]
  10. VANCOMYCIN [Concomitant]
  11. CEFTRIAXONE [Concomitant]

REACTIONS (2)
  - CEREBRAL INFARCTION [None]
  - CEREBROVASCULAR ACCIDENT [None]
